FAERS Safety Report 23117053 (Version 2)
Quarter: 2024Q3

REPORT INFORMATION
  Report Type: Spontaneous
  Country: US (occurrence: US)
  Receive Date: 20231027
  Receipt Date: 20240715
  Transmission Date: 20241017
  Serious: No
  Sender: BIOCON
  Company Number: US-MYLANLABS-2023M1111316

PATIENT
  Age: 17 Year
  Sex: Female

DRUGS (2)
  1. FULPHILA [Suspect]
     Active Substance: PEGFILGRASTIM-JMDB
     Indication: Ovarian cancer
     Dosage: 6 MILLIGRAM EVERY 21 DAYS
     Route: 058
     Dates: start: 20231018
  2. DEVICE [Suspect]
     Active Substance: DEVICE
     Indication: Ovarian cancer

REACTIONS (3)
  - Device delivery system issue [Unknown]
  - Syringe issue [Unknown]
  - Product dose omission issue [Unknown]

NARRATIVE: CASE EVENT DATE: 20231019
